FAERS Safety Report 13990475 (Version 2)
Quarter: 2017Q3

REPORT INFORMATION
  Report Type: Spontaneous
  Country: US (occurrence: US)
  Receive Date: 20170920
  Receipt Date: 20170924
  Transmission Date: 20171128
  Serious: Yes (Death, Other)
  Sender: FDA-Public Use
  Company Number: US-ROCHE-1995850

PATIENT
  Sex: Female
  Weight: 74.46 kg

DRUGS (1)
  1. XOLAIR [Suspect]
     Active Substance: OMALIZUMAB
     Indication: ASTHMA
     Route: 058
     Dates: start: 20061027, end: 20170821

REACTIONS (3)
  - Cerebrovascular accident [Unknown]
  - Death [Fatal]
  - Pancreatic carcinoma [Unknown]
